FAERS Safety Report 7435425-3 (Version None)
Quarter: 2011Q2

REPORT INFORMATION
  Report Type: 
  Country: None (occurrence: None)
  Receive Date: 20110425
  Receipt Date: 20110413
  Transmission Date: 20111010
  Serious: Yes (Hospitalization, Other)
  Sender: FDA-Public Use
  Company Number: US-MERCK-1009USA05574

PATIENT
  Age: 61 Year
  Sex: Female
  Weight: 44 kg

DRUGS (6)
  1. CALTRATE [Concomitant]
     Route: 065
  2. PREMARIN [Concomitant]
     Route: 065
     Dates: start: 19900101, end: 20030401
  3. PREMARIN [Concomitant]
     Route: 065
     Dates: start: 20030401
  4. FOSAMAX [Suspect]
     Route: 048
     Dates: start: 19950101, end: 20010101
  5. FOSAMAX [Suspect]
     Indication: OSTEOPOROSIS
     Route: 048
     Dates: start: 20010101, end: 20061101
  6. FOSAMAX PLUS D [Suspect]
     Indication: OSTEOPOROSIS
     Route: 048
     Dates: start: 20061101

REACTIONS (14)
  - ATROPHIC VULVOVAGINITIS [None]
  - FEMUR FRACTURE [None]
  - DIVERTICULUM [None]
  - ABDOMINAL PAIN [None]
  - BONE PAIN [None]
  - OSTEOPENIA [None]
  - HAEMORRHOIDS [None]
  - ARTHROPATHY [None]
  - LOW TURNOVER OSTEOPATHY [None]
  - GASTRITIS [None]
  - RECTAL POLYP [None]
  - DUODENITIS [None]
  - FIBROCYSTIC BREAST DISEASE [None]
  - VAGINAL DISORDER [None]
